FAERS Safety Report 9617678 (Version 3)
Quarter: 2014Q3

REPORT INFORMATION
  Report Type: Report from Study
  Country: US (occurrence: US)
  Receive Date: 20131011
  Receipt Date: 20140724
  Transmission Date: 20150326
  Serious: Yes (Hospitalization, Other)
  Sender: FDA-Public Use
  Company Number: US-ALEXION PHARMACEUTICALS INC.-A201302560

PATIENT

DRUGS (6)
  1. IRON [Concomitant]
     Active Substance: IRON
     Indication: MINERAL SUPPLEMENTATION
     Dosage: UNK, QD
     Route: 065
     Dates: start: 20100722
  2. SOLIRIS [Suspect]
     Active Substance: ECULIZUMAB
     Indication: PAROXYSMAL NOCTURNAL HAEMOGLOBINURIA
     Dosage: UNK
     Route: 042
  3. ANADROL [Concomitant]
     Active Substance: OXYMETHOLONE
     Indication: STEROID THERAPY
     Dosage: 200 MG, QD
     Route: 065
     Dates: start: 20100722
  4. FOLIC ACID. [Concomitant]
     Active Substance: FOLIC ACID
     Indication: BLOOD FOLATE DECREASED
     Dosage: UNK, QD
     Route: 065
     Dates: start: 20100722
  5. SOLIRIS [Suspect]
     Active Substance: ECULIZUMAB
     Dosage: 900 MG, Q2W
     Route: 042
     Dates: start: 20110106
  6. CITALOPRAM [Concomitant]
     Active Substance: CITALOPRAM HYDROBROMIDE
     Indication: PRODUCT USED FOR UNKNOWN INDICATION
     Dosage: 10 MG, QD
     Route: 065
     Dates: start: 20100722

REACTIONS (5)
  - Vaccination complication [Unknown]
  - Cellulitis [Unknown]
  - Condition aggravated [Not Recovered/Not Resolved]
  - Aplastic anaemia [Not Recovered/Not Resolved]
  - Haemolysis [Unknown]

NARRATIVE: CASE EVENT DATE: 201309
